FAERS Safety Report 18840732 (Version 3)
Quarter: 2021Q1

REPORT INFORMATION
  Report Type: Spontaneous
  Country: JP (occurrence: JP)
  Receive Date: 20210203
  Receipt Date: 20210326
  Transmission Date: 20210419
  Serious: Yes (Hospitalization)
  Sender: FDA-Public Use
  Company Number: JP-ABBVIE-20K-087-3554134-00

PATIENT
  Age: 74 Year
  Sex: Female
  Weight: 53.9 kg

DRUGS (6)
  1. VENCLEXTA [Suspect]
     Active Substance: VENETOCLAX
     Indication: CHRONIC LYMPHOCYTIC LEUKAEMIA REFRACTORY
     Route: 048
     Dates: start: 20200810, end: 202008
  2. VENCLEXTA [Suspect]
     Active Substance: VENETOCLAX
     Route: 048
     Dates: start: 20200817, end: 20200817
  3. FEBUXOSTAT. [Concomitant]
     Active Substance: FEBUXOSTAT
     Indication: PROPHYLAXIS
  4. VENCLEXTA [Suspect]
     Active Substance: VENETOCLAX
     Indication: CHRONIC LYMPHOCYTIC LEUKAEMIA RECURRENT
     Route: 048
     Dates: start: 20200803, end: 202008
  5. VENCLEXTA [Suspect]
     Active Substance: VENETOCLAX
     Route: 048
     Dates: start: 20200825, end: 20200825
  6. PREDNISOLONE. [Suspect]
     Active Substance: PREDNISOLONE
     Indication: PROPHYLAXIS
     Route: 065
     Dates: start: 20200822, end: 20200906

REACTIONS (1)
  - Oedema [Recovered/Resolved]

NARRATIVE: CASE EVENT DATE: 20200818
